FAERS Safety Report 20675629 (Version 2)
Quarter: 2022Q2

REPORT INFORMATION
  Report Type: Spontaneous
  Country: SI (occurrence: SI)
  Receive Date: 20220405
  Receipt Date: 20220615
  Transmission Date: 20220720
  Serious: Yes (Other)
  Sender: FDA-Public Use
  Company Number: SI-002147023-NVSC2021SI282772

PATIENT

DRUGS (3)
  1. RUXOLITINIB [Suspect]
     Active Substance: RUXOLITINIB
     Indication: Chronic graft versus host disease
     Dosage: UNK(2X5)
     Route: 065
     Dates: start: 20211112
  2. CYCLOSPORINE [Suspect]
     Active Substance: CYCLOSPORINE
     Indication: Chronic graft versus host disease
     Dosage: UNK
     Route: 065
  3. METHYLPREDNISOLONE [Concomitant]
     Active Substance: METHYLPREDNISOLONE
     Indication: Chronic graft versus host disease
     Dosage: 24 MG
     Route: 065

REACTIONS (6)
  - Therapeutic response decreased [Unknown]
  - Disease progression [Recovering/Resolving]
  - Chronic graft versus host disease [Recovering/Resolving]
  - Chronic graft versus host disease in skin [Recovering/Resolving]
  - Chronic graft versus host disease in eye [Recovering/Resolving]
  - Chronic graft versus host disease in lung [Recovering/Resolving]
